FAERS Safety Report 6330363-1 (Version None)
Quarter: 2009Q3

REPORT INFORMATION
  Report Type: 
  Country: None (occurrence: None)
  Receive Date: 20090827
  Receipt Date: 20090727
  Transmission Date: 20100115
  Serious: No
  Sender: FDA-Public Use
  Company Number: US-BAYER-200928280NA

PATIENT
  Age: 71 Year
  Sex: Female
  Weight: 87 kg

DRUGS (4)
  1. CIPRO [Suspect]
     Indication: DIVERTICULITIS
     Route: 065
     Dates: start: 20080816, end: 20080801
  2. METRONIDAZOLE [Suspect]
     Indication: DIVERTICULITIS
     Route: 042
     Dates: start: 20080816, end: 20080801
  3. METRONIDAZOLE [Suspect]
     Dosage: TOTAL DAILY DOSE: 1500 MG  UNIT DOSE: 500 MG
     Route: 048
     Dates: start: 20080821, end: 20080828
  4. LEVOXYL [Concomitant]

REACTIONS (5)
  - ABDOMINAL PAIN UPPER [None]
  - CHEST PAIN [None]
  - DYSGEUSIA [None]
  - NAUSEA [None]
  - PERIPHERAL COLDNESS [None]
